FAERS Safety Report 6271298-2 (Version None)
Quarter: 2009Q3

REPORT INFORMATION
  Report Type: 
  Country: None (occurrence: None)
  Receive Date: 20090716
  Receipt Date: 20090716
  Transmission Date: 20100115
  Serious: No
  Sender: FDA-Public Use
  Company Number: None

PATIENT
  Sex: Female
  Weight: 61.2356 kg

DRUGS (2)
  1. BUSPIRONE HCL [Suspect]
     Indication: ANXIETY
     Dosage: 15 MG 1X DAY MORNING
     Dates: start: 20090529
  2. BUSPIRONE HCL [Suspect]
     Indication: ANXIETY
     Dosage: 15 MG 1X DAY MORNING
     Dates: start: 20090625

REACTIONS (5)
  - ANGER [None]
  - DEPRESSION [None]
  - HOSTILITY [None]
  - INSOMNIA [None]
  - RESTLESSNESS [None]
